FAERS Safety Report 6694186-6 (Version None)
Quarter: 2010Q2

REPORT INFORMATION
  Report Type: 
  Country: None (occurrence: None)
  Receive Date: 20100423
  Receipt Date: 20100415
  Transmission Date: 20101027
  Serious: Yes (Hospitalization)
  Sender: FDA-Public Use
  Company Number: FR-ROCHE-697467

PATIENT
  Sex: Male

DRUGS (6)
  1. AVASTIN [Suspect]
     Indication: DRUG USE FOR UNKNOWN INDICATION
     Dosage: FORM: INFUSION; CYCLES
     Route: 042
     Dates: start: 20091123, end: 20100121
  2. OXALIPLATINE [Suspect]
     Indication: DRUG USE FOR UNKNOWN INDICATION
     Dosage: FORM: INFUSION; CYCLES
     Route: 042
     Dates: start: 20091123, end: 20100121
  3. FLUOROURACIL [Suspect]
     Indication: DRUG USE FOR UNKNOWN INDICATION
     Dosage: FORM: INFUSION; CYCLES
     Route: 042
     Dates: start: 20091123, end: 20100121
  4. COTAREG [Concomitant]
  5. AMLOR [Concomitant]
  6. GLUCOVANCE [Concomitant]

REACTIONS (3)
  - HAEMOLYSIS [None]
  - PANCYTOPENIA [None]
  - THROMBOCYTOPENIC PURPURA [None]
